FAERS Safety Report 6238178-X (Version None)
Quarter: 2009Q2

REPORT INFORMATION
  Report Type: 
  Country: None (occurrence: None)
  Receive Date: 20090617
  Receipt Date: 20080625
  Transmission Date: 20091009
  Serious: No
  Sender: FDA-Public Use
  Company Number: 276744

PATIENT
  Sex: Female

DRUGS (3)
  1. LEVEMIR [Suspect]
     Indication: INSULIN-REQUIRING TYPE 2 DIABETES MELLITUS
     Dosage: SUBCUTANEOUS
     Route: 058
  2. METFORMIN HCL [Concomitant]
  3. ACTOS /01460201/(PIOGLITAZONE) [Concomitant]

REACTIONS (1)
  - DERMATITIS ALLERGIC [None]
